FAERS Safety Report 10682515 (Version 1)
Quarter: 2014Q4

REPORT INFORMATION
  Report Type: Spontaneous
  Country: CN (occurrence: None)
  Receive Date: 20141224
  Receipt Date: 20141224
  Transmission Date: 20150529
  Serious: Yes (Death)
  Sender: FDA-Public Use
  Company Number: FK201406443

PATIENT
  Age: 42 Year
  Sex: Male

DRUGS (1)
  1. METHOTREXATE [Suspect]
     Active Substance: METHOTREXATE
     Indication: GOUT

REACTIONS (6)
  - Multi-organ failure [None]
  - Acinetobacter test positive [None]
  - Infection [None]
  - Septic shock [None]
  - Pneumonia klebsiella [None]
  - Intentional product misuse [None]
